FAERS Safety Report 17075552 (Version 1)
Quarter: 2019Q4

REPORT INFORMATION
  Report Type: Spontaneous
  Country: US (occurrence: US)
  Receive Date: 20191125
  Receipt Date: 20191125
  Transmission Date: 20200122
  Serious: Yes (Hospitalization, Other)
  Sender: FDA-Public Use
  Company Number: None

PATIENT
  Age: 66 Year
  Sex: Female
  Weight: 72 kg

DRUGS (1)
  1. OPTIRAY 320 [Suspect]
     Active Substance: IOVERSOL
     Indication: X-RAY WITH CONTRAST
     Dosage: ?          OTHER FREQUENCY:ONCE FOR SCAN;?
     Route: 042
     Dates: start: 20190521, end: 20190521

REACTIONS (3)
  - Generalised tonic-clonic seizure [None]
  - Wrong technique in product usage process [None]
  - Dysgeusia [None]

NARRATIVE: CASE EVENT DATE: 20190521
